FAERS Safety Report 18675424 (Version 5)
Quarter: 2021Q2

REPORT INFORMATION
  Report Type: Report from Study
  Country: CN (occurrence: CN)
  Receive Date: 20201229
  Receipt Date: 20210406
  Transmission Date: 20210717
  Serious: Yes (Hospitalization)
  Sender: FDA-Public Use
  Company Number: PHHO2019CN000680

PATIENT
  Age: 70 Year
  Sex: Male
  Weight: 64 kg

DRUGS (3)
  1. SACUBITRIL,VALSARTAN [Suspect]
     Active Substance: SACUBITRIL\VALSARTAN
     Indication: ACUTE MYOCARDIAL INFARCTION
     Dosage: 2 MG, BID
     Route: 048
     Dates: start: 20181214
  2. ASPIRIN. [Concomitant]
     Active Substance: ASPIRIN
     Indication: ACUTE MYOCARDIAL INFARCTION
     Dosage: 100 MG, QD
     Route: 048
     Dates: start: 20181208
  3. ACARBOSE. [Concomitant]
     Active Substance: ACARBOSE
     Indication: DIABETES MELLITUS
     Dosage: 100 MG, TID
     Route: 048
     Dates: start: 20181210

REACTIONS (3)
  - Cholecystitis [Recovering/Resolving]
  - Pulmonary mass [Not Recovered/Not Resolved]
  - Eczema [Recovered/Resolved with Sequelae]

NARRATIVE: CASE EVENT DATE: 20190103
